FAERS Safety Report 7798931-8 (Version None)
Quarter: 2011Q4

REPORT INFORMATION
  Report Type: 
  Country: None (occurrence: None)
  Receive Date: 20111006
  Receipt Date: 20111003
  Transmission Date: 20120403
  Serious: No
  Sender: FDA-Public Use
  Company Number: US-PFIZER INC-2011237203

PATIENT
  Sex: Female
  Weight: 47.619 kg

DRUGS (4)
  1. LIPITOR [Suspect]
     Indication: BLOOD CHOLESTEROL ABNORMAL
     Dosage: 20 MG, DAILY
     Dates: start: 20110101
  2. VITAMIN TAB [Concomitant]
     Dosage: UNK
  3. HYZAAR [Concomitant]
     Indication: BLOOD PRESSURE ABNORMAL
     Dosage: 50/12.5 MG, DAILY
  4. VERAPAMIL [Concomitant]
     Indication: CARDIAC DISORDER
     Dosage: 180 MG, 2X/DAY

REACTIONS (1)
  - MUSCLE SPASMS [None]
